FAERS Safety Report 8462774 (Version 6)
Quarter: 2012Q4

REPORT INFORMATION
  Report Type: Report from Study
  Country: JP (occurrence: JP)
  Receive Date: 20120316
  Receipt Date: 20121220
  Transmission Date: 20130627
  Serious: Yes (Hospitalization, Other)
  Sender: FDA-Public Use
  Company Number: JP-VERTEX PHARMACEUTICALS INC.-AE-2012-003624

PATIENT
  Age: 63 Year
  Sex: Female

DRUGS (10)
  1. VX-950 (TELAPREVIR) [Suspect]
     Indication: CHRONIC HEPATITIS C
     Dosage: 1500 mg, qd
     Route: 048
     Dates: start: 20120209, end: 20120302
  2. VX-950 (TELAPREVIR) [Suspect]
     Dosage: 1500 mg, qd
     Route: 048
     Dates: start: 20120308, end: 20120329
  3. VX-950 (TELAPREVIR) [Suspect]
     Dosage: 1000 mg, qd
     Route: 048
     Dates: start: 20120330, end: 20120419
  4. VX-950 (TELAPREVIR) [Suspect]
     Dosage: 1000 mg, qd
     Route: 048
     Dates: start: 20120421
  5. RIBAVIRIN [Suspect]
     Indication: CHRONIC HEPATITIS C
     Dosage: 600 mg, qd
     Route: 048
     Dates: start: 20120209, end: 20120307
  6. RIBAVIRIN [Suspect]
     Dosage: 200 mg, qd
     Route: 048
     Dates: start: 20120308, end: 20120419
  7. RIBAVIRIN [Suspect]
     Dosage: 400 mg, qd
     Route: 048
     Dates: start: 20120421
  8. PEGINTERFERON ALFA-2B [Concomitant]
     Dosage: 1.5 ?g/kg, qw
     Route: 058
     Dates: start: 20120209
  9. PARIET [Concomitant]
     Dosage: 10 mg, qd
     Route: 048
  10. PROMAC                             /01312301/ [Concomitant]
     Dosage: 1 g, qd
     Route: 048

REACTIONS (5)
  - Hepatic function abnormal [Not Recovered/Not Resolved]
  - Pyrexia [Not Recovered/Not Resolved]
  - Nausea [Recovered/Resolved]
  - Vomiting [Recovered/Resolved]
  - Anaemia [Not Recovered/Not Resolved]
